FAERS Safety Report 7331478-1 (Version None)
Quarter: 2011Q1

REPORT INFORMATION
  Report Type: 
  Country: None (occurrence: None)
  Receive Date: 20110304
  Receipt Date: 20110224
  Transmission Date: 20110831
  Serious: No
  Sender: FDA-Public Use
  Company Number: B0702671A

PATIENT
  Age: 10 Year
  Sex: Female

DRUGS (1)
  1. RELENZA [Suspect]
     Dosage: 4IUAX PER DAY
     Route: 055

REACTIONS (2)
  - OVERDOSE [None]
  - NO ADVERSE EVENT [None]
